FAERS Safety Report 6714096-5 (Version None)
Quarter: 2010Q2

REPORT INFORMATION
  Report Type: 
  Country: None (occurrence: None)
  Receive Date: 20100506
  Receipt Date: 20100430
  Transmission Date: 20101027
  Serious: Yes (Other)
  Sender: FDA-Public Use
  Company Number: US-RB-008269-10

PATIENT
  Age: 30 Year
  Sex: Female

DRUGS (4)
  1. SUBOXONE [Suspect]
     Dosage: 16-24 MG DAILY
     Route: 060
     Dates: start: 20100101
  2. SUBOXONE [Suspect]
     Route: 060
     Dates: start: 20081101, end: 20100101
  3. SEROQUEL [Suspect]
     Indication: BIPOLAR DISORDER
     Dosage: DOSING DETAILS UNKNOWN
     Route: 065
     Dates: start: 20080101
  4. SEROQUEL [Suspect]
     Indication: ANXIETY
     Dosage: DOSING DETAILS UNKNOWN
     Route: 065
     Dates: start: 20080101

REACTIONS (1)
  - CONVULSION [None]
